FAERS Safety Report 10447583 (Version 2)
Quarter: 2015Q3

REPORT INFORMATION
  Report Type: Spontaneous
  Country: US (occurrence: US)
  Receive Date: 20140911
  Receipt Date: 20150903
  Transmission Date: 20151125
  Serious: No
  Sender: FDA-Public Use
  Company Number: US-BEH-2014043027

PATIENT
  Sex: Female
  Weight: 42 kg

DRUGS (28)
  1. LMX [Concomitant]
     Active Substance: LIDOCAINE
  2. DOXYCYCLINE HYCLATE. [Concomitant]
     Active Substance: DOXYCYCLINE HYCLATE
  3. TRAMADOL HCL [Concomitant]
     Active Substance: TRAMADOL HYDROCHLORIDE
  4. DILTIAZEM [Concomitant]
     Active Substance: DILTIAZEM
     Dosage: 24 HR CD
  5. HIZENTRA [Suspect]
     Active Substance: HUMAN IMMUNOGLOBULIN G
  6. HEPARIN [Concomitant]
     Active Substance: HEPARIN SODIUM
     Dosage: 100 UNITS.ML
  7. LEVAQUIN [Concomitant]
     Active Substance: LEVOFLOXACIN
  8. OXYGEN. [Concomitant]
     Active Substance: OXYGEN
  9. PLAVIX [Concomitant]
     Active Substance: CLOPIDOGREL BISULFATE
  10. DIPHENHYDRAMINE. [Concomitant]
     Active Substance: DIPHENHYDRAMINE
  11. AUGMENTIN [Concomitant]
     Active Substance: AMOXICILLIN\CLAVULANATE POTASSIUM
     Dosage: 875-125
  12. LEXAPRO [Concomitant]
     Active Substance: ESCITALOPRAM OXALATE
  13. LORCET [Concomitant]
     Active Substance: ACETAMINOPHEN\HYDROCODONE BITARTRATE
     Dosage: 10-650
  14. ASPIRIN EC [Concomitant]
     Active Substance: ASPIRIN
  15. LIPITOR [Concomitant]
     Active Substance: ATORVASTATIN CALCIUM
  16. SYMBICORT [Concomitant]
     Active Substance: BUDESONIDE\FORMOTEROL FUMARATE DIHYDRATE
     Dosage: 160-4.5 MCG
  17. PREDNISONE. [Concomitant]
     Active Substance: PREDNISONE
  18. DALIRESP [Concomitant]
     Active Substance: ROFLUMILAST
  19. DIAZEPAM. [Concomitant]
     Active Substance: DIAZEPAM
  20. VERAMYST [Concomitant]
     Active Substance: FLUTICASONE FUROATE
  21. SPIRIVA [Concomitant]
     Active Substance: TIOTROPIUM BROMIDE MONOHYDRATE
  22. VITAMIN D3 [Concomitant]
     Active Substance: CHOLECALCIFEROL
  23. ALBUTEROL. [Concomitant]
     Active Substance: ALBUTEROL
  24. EPIPEN [Concomitant]
     Active Substance: EPINEPHRINE
  25. ZEMAIRA [Suspect]
     Active Substance: .ALPHA.1-PROTEINASE INHIBITOR HUMAN
     Indication: ALPHA-1 ANTI-TRYPSIN DEFICIENCY
     Route: 042
  26. SODIUM CHLORIDE. [Concomitant]
     Active Substance: SODIUM CHLORIDE
  27. SINGULAIR [Concomitant]
     Active Substance: MONTELUKAST SODIUM
  28. CLARITIN [Concomitant]
     Active Substance: LORATADINE

REACTIONS (3)
  - Wound complication [Unknown]
  - Wound [Unknown]
  - Impaired healing [Unknown]
